FAERS Safety Report 24091191 (Version 3)
Quarter: 2024Q4

REPORT INFORMATION
  Report Type: Spontaneous
  Country: JP (occurrence: JP)
  Receive Date: 20240715
  Receipt Date: 20241206
  Transmission Date: 20250114
  Serious: Yes (Death, Life-Threatening, Other)
  Sender: VERICEL
  Company Number: JP-VERICEL-JP-VCEL-24-000263

PATIENT
  Age: 65 Year
  Sex: Female

DRUGS (2)
  1. BROMELAINS [Suspect]
     Active Substance: BROMELAINS
     Indication: Burns second degree
     Dosage: 20 GRAM, SINGLE
     Route: 061
     Dates: start: 20230925, end: 20230925
  2. BROMELAINS [Suspect]
     Active Substance: BROMELAINS
     Indication: Burns third degree
     Dosage: 30 GRAM, SINGLE
     Route: 061
     Dates: start: 20230926, end: 20230926

REACTIONS (2)
  - Gastrointestinal haemorrhage [None]
  - Sepsis [Fatal]

NARRATIVE: CASE EVENT DATE: 20231003
